FAERS Safety Report 5890155-4 (Version None)
Quarter: 2008Q3

REPORT INFORMATION
  Report Type: 
  Country: None (occurrence: None)
  Receive Date: 20080919
  Receipt Date: 20080908
  Transmission Date: 20090109
  Serious: Yes (Other)
  Sender: FDA-Public Use
  Company Number: US-PFIZER INC-2008075492

PATIENT
  Sex: Male
  Weight: 90.909 kg

DRUGS (4)
  1. DILANTIN [Suspect]
     Indication: GRAND MAL CONVULSION
     Dosage: DAILY DOSE:350MG
     Dates: start: 20050101, end: 20070101
  2. DILANTIN [Suspect]
     Indication: GRAND MAL CONVULSION
     Dates: start: 20050101
  3. DILANTIN [Suspect]
     Indication: GRAND MAL CONVULSION
     Dates: start: 20080101
  4. KEPPRA [Suspect]
     Indication: CONVULSION
     Dates: start: 20070101, end: 20080101

REACTIONS (5)
  - CONVULSION [None]
  - DRUG INEFFECTIVE [None]
  - FEELING ABNORMAL [None]
  - PANCREATIC CARCINOMA [None]
  - TIC [None]
